FAERS Safety Report 8926978 (Version 3)
Quarter: 2013Q1

REPORT INFORMATION
  Report Type: Spontaneous
  Country: US (occurrence: US)
  Receive Date: 20121127
  Receipt Date: 20130124
  Transmission Date: 20140127
  Serious: Yes (Other)
  Sender: FDA-Public Use
  Company Number: US-AMGEN-USASP2012075256

PATIENT
  Age: 78 Year
  Sex: Male
  Weight: 108.84 kg

DRUGS (7)
  1. NPLATE [Suspect]
     Indication: IDIOPATHIC THROMBOCYTOPENIC PURPURA
     Dosage: 2.5 MUG, QWK
     Route: 058
     Dates: start: 20111210
  2. PREDNISONE [Concomitant]
     Dosage: UNK
     Dates: end: 201202
  3. AMLODIPINE [Concomitant]
     Indication: HYPERTENSION
     Dosage: 2.5 UNK, QD
     Route: 048
  4. DOXAZOSIN [Concomitant]
     Indication: BENIGN PROSTATIC HYPERPLASIA
     Dosage: 1 MG, QD
     Route: 048
  5. GLYBURIDE [Concomitant]
     Indication: DIABETES MELLITUS
     Dosage: 1.25 UNK, QD
     Route: 048
  6. LEVOXYL [Concomitant]
     Indication: HYPOTHYROIDISM
     Dosage: 75 MUG, QD
     Route: 048
  7. TOPROL [Concomitant]
     Indication: HYPERTENSION
     Dosage: 50 UNK, QD
     Route: 048

REACTIONS (2)
  - Platelet count decreased [Not Recovered/Not Resolved]
  - Blood glucose increased [Unknown]
